FAERS Safety Report 4316029-8 (Version None)
Quarter: 2004Q1

REPORT INFORMATION
  Report Type: 
  Country: None (occurrence: None)
  Receive Date: 20040311
  Receipt Date: 20040219
  Transmission Date: 20041129
  Serious: Yes (Hospitalization)
  Sender: FDA-Public Use
  Company Number: F01200400337

PATIENT
  Age: 52 Year
  Sex: Female

DRUGS (4)
  1. (OXALIPLATIN) - SOLUTION - 85 MG/M2 [Suspect]
     Indication: COLORECTAL CANCER
     Dosage: 85MG/M2 Q2W
     Route: 042
     Dates: start: 20040204, end: 20040204
  2. LEUCOVORIN CALCIUM [Suspect]
     Dosage: 350 MG Q2W
     Route: 042
     Dates: start: 20040204, end: 20040204
  3. FLUOROURACIL [Suspect]
     Dosage: 400 MG/M2 BOLUS THEN 2400 MG/M2 AS 46 HOURS INFUSION Q2W
     Route: 042
     Dates: start: 20040204, end: 20040204
  4. AVASTIN [Suspect]
     Dosage: 5 MG/KG OVER 30-90 MINUTES IV INFUSION ON DAY 1, Q2W
     Route: 042
     Dates: start: 20040204, end: 20040204

REACTIONS (15)
  - BLOOD FIBRINOGEN INCREASED [None]
  - BLOOD SODIUM INCREASED [None]
  - DIZZINESS [None]
  - FIBRIN D DIMER INCREASED [None]
  - HAEMOGLOBIN DECREASED [None]
  - HEART RATE INCREASED [None]
  - HYPOKALAEMIA [None]
  - HYPONATRAEMIA [None]
  - HYPOTENSION [None]
  - INTERNATIONAL NORMALISED RATIO INCREASED [None]
  - NAUSEA [None]
  - NEUTROPENIA [None]
  - SEPSIS [None]
  - SYNCOPE [None]
  - VOMITING [None]
